FAERS Safety Report 5808351-0 (Version None)
Quarter: 2008Q3

REPORT INFORMATION
  Report Type: 
  Country: None (occurrence: None)
  Receive Date: 20080714
  Receipt Date: 20080701
  Transmission Date: 20090109
  Serious: Yes (Disabling)
  Sender: FDA-Public Use
  Company Number: PHNU2007DE02106

PATIENT
  Sex: Male

DRUGS (1)
  1. EXFORGE [Suspect]
     Indication: HYPERTENSION
     Dosage: 1 DF QD
     Route: 048

REACTIONS (7)
  - FOLATE DEFICIENCY [None]
  - GLUCOSE TOLERANCE TEST ABNORMAL [None]
  - GLYCOSYLATED HAEMOGLOBIN [None]
  - NEUROPATHY PERIPHERAL [None]
  - OEDEMA PERIPHERAL [None]
  - VITAMIN B12 ABNORMAL [None]
  - VITAMIN B6 ABNORMAL [None]
